APPROVED DRUG PRODUCT: AMINOPHYLLINE
Active Ingredient: AMINOPHYLLINE
Strength: 25MG/ML
Dosage Form/Route: INJECTABLE;INJECTION
Application: A087886 | Product #001
Applicant: ABRAXIS PHARMACEUTICAL PRODUCTS
Approved: Aug 30, 1983 | RLD: No | RS: No | Type: DISCN